FAERS Safety Report 25824198 (Version 1)
Quarter: 2025Q3

REPORT INFORMATION
  Report Type: Spontaneous
  Country: US (occurrence: None)
  Receive Date: 20250919
  Receipt Date: 20250919
  Transmission Date: 20251021
  Serious: No
  Sender: FDA-CTU
  Company Number: None

PATIENT
  Age: 55 Year
  Sex: Female

DRUGS (1)
  1. XOLAIR [Suspect]
     Active Substance: OMALIZUMAB
     Route: 058
     Dates: start: 20250828, end: 20250917

REACTIONS (10)
  - Rash [None]
  - Feeling hot [None]
  - Tenderness [None]
  - Pyrexia [None]
  - Oropharyngeal pain [None]
  - Dermatitis allergic [None]
  - Eczema [None]
  - Dermatitis atopic [None]
  - Parapsoriasis [None]
  - Serum sickness [None]
